FAERS Safety Report 9913866 (Version 1)
Quarter: 2014Q1

REPORT INFORMATION
  Report Type: Spontaneous
  Country: US (occurrence: None)
  Receive Date: 20140219
  Receipt Date: 20140219
  Transmission Date: 20141002
  Serious: Yes (Death)
  Sender: FDA-Public Use
  Company Number: None

PATIENT
  Age: 63 Year
  Sex: Male
  Weight: 95.26 kg

DRUGS (2)
  1. ANDROGEL [Suspect]
     Indication: BLOOD TESTOSTERONE DECREASED
     Dosage: 2 PUMPS DAILY ONCE DAILY  APPLIED TO A SURGACE, USUALLY THE SKIN
     Route: 048
  2. ANDROGEL [Suspect]
     Indication: ERECTILE DYSFUNCTION
     Dosage: 2 PUMPS DAILY ONCE DAILY  APPLIED TO A SURGACE, USUALLY THE SKIN
     Route: 048

REACTIONS (1)
  - Myocardial infarction [None]
